FAERS Safety Report 9878835 (Version 1)
Quarter: 2014Q1

REPORT INFORMATION
  Report Type: Spontaneous
  Country: FR (occurrence: FR)
  Receive Date: 20140206
  Receipt Date: 20140206
  Transmission Date: 20141002
  Serious: Yes (Other)
  Sender: FDA-Public Use
  Company Number: FR-GLAXOSMITHKLINE-B0966926A

PATIENT
  Age: 85 Year
  Sex: Female

DRUGS (3)
  1. ALKERAN [Suspect]
     Indication: PRODUCT USED FOR UNKNOWN INDICATION
     Dosage: 2MG FOUR TIMES PER DAY
     Route: 042
     Dates: start: 20130617, end: 201311
  2. VELCADE [Suspect]
     Indication: PRODUCT USED FOR UNKNOWN INDICATION
     Dosage: 2MG PER DAY
     Route: 058
     Dates: start: 20130523, end: 201311
  3. CORTANCYL [Suspect]
     Indication: PRODUCT USED FOR UNKNOWN INDICATION
     Dosage: 20MG FOUR TIMES PER DAY
     Route: 048
     Dates: start: 20130617, end: 201311

REACTIONS (1)
  - Amnestic disorder [Not Recovered/Not Resolved]
